FAERS Safety Report 26119937 (Version 1)
Quarter: 2025Q4

REPORT INFORMATION
  Report Type: Spontaneous
  Country: ID (occurrence: ID)
  Receive Date: 20251204
  Receipt Date: 20251204
  Transmission Date: 20260117
  Serious: Yes (Hospitalization)
  Sender: MACLEODS
  Company Number: ID-MACLEODS PHARMA-MAC2025056754

PATIENT

DRUGS (5)
  1. CLOPIDOGREL [Suspect]
     Active Substance: CLOPIDOGREL BISULFATE
     Indication: Coronary artery disease
     Dosage: 1X75 MG
     Route: 065
  2. CANDESARTAN [Concomitant]
     Active Substance: CANDESARTAN
     Indication: Hypertension
     Dosage: 1X16 MG,TWICE
     Route: 065
  3. Diltilazem [Concomitant]
     Indication: Hypertension
     Dosage: 1X100 MG
     Route: 065
  4. FUROSEMIDE [Concomitant]
     Active Substance: FUROSEMIDE
     Indication: Hypertension
     Dosage: 1X40 MG
     Route: 065
  5. ASPIRIN [Concomitant]
     Active Substance: ASPIRIN
     Indication: Coronary artery disease
     Dosage: 1X80 MG
     Route: 065

REACTIONS (3)
  - Haemarthrosis [Recovering/Resolving]
  - Anaemia [Recovering/Resolving]
  - Acquired haemophilia [Recovering/Resolving]
